FAERS Safety Report 8239062-2 (Version None)
Quarter: 2012Q1

REPORT INFORMATION
  Report Type: 
  Country: None (occurrence: None)
  Receive Date: 20120327
  Receipt Date: 20120319
  Transmission Date: 20120608
  Serious: Yes (Hospitalization)
  Sender: FDA-Public Use
  Company Number: US-ASTRAZENECA-2010SE50779

PATIENT
  Age: 77 Year
  Sex: Female
  Weight: 63.5 kg

DRUGS (6)
  1. CONTINUOUS OXYGEN [Concomitant]
     Indication: CHRONIC OBSTRUCTIVE PULMONARY DISEASE
     Route: 055
  2. PREDNISONE TAB [Concomitant]
     Dosage: 20 MGS
  3. SYMBICORT [Suspect]
     Indication: CHRONIC OBSTRUCTIVE PULMONARY DISEASE
     Dosage: 160/4.5 MCG DAILY
     Route: 055
     Dates: start: 20081201
  4. INHALED CORTICOSTEROIDS [Concomitant]
  5. COMBIVENT [Concomitant]
     Indication: CHRONIC OBSTRUCTIVE PULMONARY DISEASE
     Route: 055
  6. PREDNISONE TAB [Concomitant]
     Dosage: 60 MGS

REACTIONS (3)
  - SPINAL COMPRESSION FRACTURE [None]
  - COMPRESSION FRACTURE [None]
  - SPEECH DISORDER [None]
